FAERS Safety Report 5648553-X (Version None)
Quarter: 2008Q1

REPORT INFORMATION
  Report Type: 
  Country: None (occurrence: None)
  Receive Date: 20080303
  Receipt Date: 20080303
  Transmission Date: 20080703
  Serious: Yes (Hospitalization)
  Sender: FDA-Public Use
  Company Number: None

PATIENT
  Age: 26 Year
  Sex: Female

DRUGS (3)
  1. TAMIFLU [Suspect]
     Indication: INFLUENZA
     Dosage: PO
     Route: 048
     Dates: start: 20080207, end: 20080209
  2. BUPROPION HCL [Concomitant]
  3. PAROXETINE [Concomitant]

REACTIONS (4)
  - DEHYDRATION [None]
  - DRUG HYPERSENSITIVITY [None]
  - ERYTHEMA MULTIFORME [None]
  - THERAPEUTIC RESPONSE DECREASED [None]
